FAERS Safety Report 9580550 (Version 1)
Quarter: 2013Q4

REPORT INFORMATION
  Report Type: Spontaneous
  Country: US (occurrence: None)
  Receive Date: 20131001
  Receipt Date: 20131001
  Transmission Date: 20140711
  Serious: Yes (Hospitalization)
  Sender: FDA-Public Use
  Company Number: None

PATIENT
  Age: 84 Year
  Sex: Male
  Weight: 102.97 kg

DRUGS (2)
  1. DECITABINE [Suspect]
     Indication: ACUTE MYELOID LEUKAEMIA
     Dosage: 20MG/M2; QDX10; 28DAY CYC
     Dates: start: 20130712
  2. VORICONAZOLE [Concomitant]

REACTIONS (5)
  - Asthenia [None]
  - Fall [None]
  - Pyrexia [None]
  - Head injury [None]
  - Back injury [None]
